FAERS Safety Report 22236478 (Version 1)
Quarter: 2023Q2

REPORT INFORMATION
  Report Type: Spontaneous
  Country: US (occurrence: None)
  Receive Date: 20230420
  Receipt Date: 20230420
  Transmission Date: 20230721
  Serious: No
  Sender: FDA-Public Use
  Company Number: US-ROCHE-3188652

PATIENT
  Sex: Female
  Weight: 60.836 kg

DRUGS (1)
  1. AVASTIN [Suspect]
     Active Substance: BEVACIZUMAB
     Indication: Neovascular age-related macular degeneration
     Dosage: FORMULATION: INJECTION
     Route: 043

REACTIONS (5)
  - Off label use [Unknown]
  - Eye pain [Unknown]
  - Lacrimation increased [Unknown]
  - Discomfort [Unknown]
  - Pain [Unknown]
